FAERS Safety Report 14698300 (Version 1)
Quarter: 2018Q1

REPORT INFORMATION
  Report Type: Spontaneous
  Country: GB (occurrence: GB)
  Receive Date: 20180330
  Receipt Date: 20180330
  Transmission Date: 20180509
  Serious: Yes (Other)
  Sender: FDA-Public Use
  Company Number: GB-ROCHE-2098095

PATIENT

DRUGS (9)
  1. ALEMTUZUMAB [Concomitant]
     Active Substance: ALEMTUZUMAB
     Indication: PRODUCT USED FOR UNKNOWN INDICATION
     Route: 065
  2. IDELALISIB [Suspect]
     Active Substance: IDELALISIB
     Indication: B-CELL PROLYMPHOCYTIC LEUKAEMIA
     Dosage: (ON ALTERNATE DAY)
     Route: 048
  3. IDELALISIB [Suspect]
     Active Substance: IDELALISIB
     Route: 048
  4. IDELALISIB [Suspect]
     Active Substance: IDELALISIB
     Route: 048
  5. MELPHALAN. [Concomitant]
     Active Substance: MELPHALAN
     Indication: PRODUCT USED FOR UNKNOWN INDICATION
     Route: 065
  6. RITUXIMAB. [Suspect]
     Active Substance: RITUXIMAB
     Indication: B-CELL PROLYMPHOCYTIC LEUKAEMIA
     Route: 065
  7. IDELALISIB [Suspect]
     Active Substance: IDELALISIB
     Route: 048
  8. IDELALISIB [Suspect]
     Active Substance: IDELALISIB
     Route: 048
  9. FLUDARABINE [Concomitant]
     Active Substance: FLUDARABINE PHOSPHATE
     Indication: PRODUCT USED FOR UNKNOWN INDICATION
     Route: 065

REACTIONS (2)
  - Alanine aminotransferase increased [Recovered/Resolved]
  - Diarrhoea [Unknown]
